FAERS Safety Report 7974825-X (Version None)
Quarter: 2011Q4

REPORT INFORMATION
  Report Type: 
  Country: None (occurrence: None)
  Receive Date: 20111213
  Receipt Date: 20111207
  Transmission Date: 20120403
  Serious: Yes (Hospitalization, Other)
  Sender: FDA-Public Use
  Company Number: PHEH2006US12237

PATIENT
  Sex: Female
  Weight: 102.49 kg

DRUGS (47)
  1. BACTRIM [Concomitant]
  2. ACETAMINOPHEN [Concomitant]
  3. FLORINEF [Concomitant]
  4. RELAFEN [Concomitant]
  5. TOPROL-XL [Concomitant]
  6. LEVAQUIN [Concomitant]
  7. TIAZAC [Concomitant]
  8. COLACE [Concomitant]
  9. REZULIN [Concomitant]
  10. ZOMETA [Suspect]
     Indication: METASTASES TO BONE
     Dosage: 2MG IN 100CC NS
  11. NPH INSULIN [Concomitant]
  12. KLOR-CON [Concomitant]
  13. DETROL [Concomitant]
  14. DILACOR                                 /BRA/ [Concomitant]
  15. MOTRIN [Concomitant]
  16. OXYCODONE HCL [Concomitant]
  17. FLUCONAZOLE [Concomitant]
  18. FAMVIR [Concomitant]
  19. BEXTRA [Concomitant]
  20. SILVER SULFADIAZINE [Concomitant]
  21. AREDIA [Suspect]
     Indication: BREAST CANCER
     Dosage: 60MG UNK
  22. XALATAN [Concomitant]
  23. FEMARA [Concomitant]
  24. ALTACE [Concomitant]
  25. ZOFRAN [Concomitant]
  26. VIOXX [Concomitant]
  27. DARVOCET-N 50 [Concomitant]
  28. BETOPTIC [Concomitant]
  29. FLORESTOR [Concomitant]
  30. LASIX [Concomitant]
  31. COSOPT [Concomitant]
  32. AVANDIA [Concomitant]
  33. ASPIRIN [Concomitant]
  34. DALMANE [Concomitant]
  35. COUMADIN [Concomitant]
  36. LUMIGAN [Concomitant]
  37. NYSTATIN [Concomitant]
  38. HYDROCHLOROTHIAZIDE [Concomitant]
  39. NEURONTIN [Concomitant]
  40. ACCUPRIL [Concomitant]
  41. DYAZIDE [Concomitant]
  42. ZOVIRAX [Concomitant]
  43. M.V.I. [Concomitant]
  44. PERCOCET [Concomitant]
  45. CARDIZEM CD [Concomitant]
  46. CARDURA                                 /IRE/ [Concomitant]
  47. DAYPRO [Concomitant]

REACTIONS (100)
  - TACHYCARDIA [None]
  - OSTEONECROSIS OF JAW [None]
  - EMOTIONAL DISTRESS [None]
  - PHYSICAL DISABILITY [None]
  - RENAL FAILURE [None]
  - OEDEMA PERIPHERAL [None]
  - AZOTAEMIA [None]
  - BONE MARROW OEDEMA [None]
  - CEREBROVASCULAR ACCIDENT [None]
  - CARDIAC FAILURE CONGESTIVE [None]
  - HEARING IMPAIRED [None]
  - PLEURAL EFFUSION [None]
  - HYPERCALCAEMIA [None]
  - RESTLESSNESS [None]
  - BLOOD UREA INCREASED [None]
  - COUGH [None]
  - FEELING HOT [None]
  - HAEMATOCRIT DECREASED [None]
  - MENINGIOMA [None]
  - RADICULOPATHY [None]
  - SKIN CANCER [None]
  - DEHYDRATION [None]
  - HYPERLIPIDAEMIA [None]
  - VITAMIN D DEFICIENCY [None]
  - MEMORY IMPAIRMENT [None]
  - PULMONARY CONGESTION [None]
  - CONFUSIONAL STATE [None]
  - BONE LESION [None]
  - DIZZINESS [None]
  - NECK PAIN [None]
  - CEREBRAL INFARCTION [None]
  - UNRESPONSIVE TO STIMULI [None]
  - MYOSITIS [None]
  - SKIN ULCER [None]
  - DYSPNOEA [None]
  - WHEEZING [None]
  - INTERNATIONAL NORMALISED RATIO INCREASED [None]
  - ATRIAL FIBRILLATION [None]
  - PAIN [None]
  - INJURY [None]
  - ABSCESS [None]
  - DIABETIC NEUROPATHY [None]
  - MELAENA [None]
  - ARTHRITIS [None]
  - RASH [None]
  - ECCHYMOSIS [None]
  - LYMPHOCYTE COUNT DECREASED [None]
  - INTERVERTEBRAL DISC DEGENERATION [None]
  - BRONCHITIS [None]
  - SNORING [None]
  - HYPOTONIA [None]
  - ARTHRALGIA [None]
  - GAIT DISTURBANCE [None]
  - ANXIETY [None]
  - INFECTION [None]
  - TRICUSPID VALVE INCOMPETENCE [None]
  - CALCULUS URINARY [None]
  - LEFT ATRIAL DILATATION [None]
  - TENSION [None]
  - BLOOD CREATININE INCREASED [None]
  - ERYTHEMA [None]
  - TENDONITIS [None]
  - INFLAMMATION [None]
  - HYPOPHAGIA [None]
  - LIFE EXPECTANCY SHORTENED [None]
  - DECREASED INTEREST [None]
  - URINARY TRACT INFECTION [None]
  - SQUAMOUS CELL CARCINOMA OF SKIN [None]
  - PNEUMONIA [None]
  - ARTERIOSCLEROSIS [None]
  - VASCULAR CALCIFICATION [None]
  - BRADYCARDIA [None]
  - FAECALOMA [None]
  - SPONDYLOLISTHESIS [None]
  - GLAUCOMA [None]
  - FATIGUE [None]
  - SOMNOLENCE [None]
  - IMPAIRED HEALING [None]
  - BONE DISORDER [None]
  - PRIMARY SEQUESTRUM [None]
  - LUMBAR SPINAL STENOSIS [None]
  - MITRAL VALVE INCOMPETENCE [None]
  - PULMONARY HYPERTENSION [None]
  - STAPHYLOCOCCAL INFECTION [None]
  - GASTROINTESTINAL HAEMORRHAGE [None]
  - ASTHENIA [None]
  - PROTHROMBIN TIME PROLONGED [None]
  - HAEMOGLOBIN DECREASED [None]
  - RED BLOOD CELL COUNT DECREASED [None]
  - TRANSIENT ISCHAEMIC ATTACK [None]
  - DEFORMITY [None]
  - PURULENT DISCHARGE [None]
  - OSTEOMYELITIS [None]
  - ANAEMIA [None]
  - CELLULITIS [None]
  - SUBCUTANEOUS ABSCESS [None]
  - RIGHT ATRIAL DILATATION [None]
  - OCCULT BLOOD [None]
  - DEEP VEIN THROMBOSIS [None]
  - OBESITY [None]
